FAERS Safety Report 8923451 (Version 2)
Quarter: 2012Q4

REPORT INFORMATION
  Report Type: 
  Country: IT (occurrence: IT)
  Receive Date: 20121123
  Receipt Date: 20121212
  Transmission Date: 20130627
  Serious: Yes (Hospitalization)
  Sender: FDA-Public Use
  Company Number: IT-JNJFOC-20121108406

PATIENT
  Age: 62 Year
  Sex: Female

DRUGS (2)
  1. SPORANOX [Suspect]
     Indication: VULVOVAGINAL CANDIDIASIS
     Dosage: 10 days before the patient started taking 4 tablets per day
     Route: 048
  2. CAFERGOT [Interacting]
     Indication: MIGRAINE WITH AURA
     Dosage: 2-4 mg/day for 5-6 years
     Route: 065

REACTIONS (2)
  - Arterial occlusive disease [Recovered/Resolved]
  - Drug interaction [Recovered/Resolved]
